FAERS Safety Report 6572199-2 (Version None)
Quarter: 2010Q1

REPORT INFORMATION
  Report Type: 
  Country: None (occurrence: None)
  Receive Date: 20100205
  Receipt Date: 20100127
  Transmission Date: 20100710
  Serious: Yes (Other)
  Sender: FDA-Public Use
  Company Number: PHEH2010US01500

PATIENT
  Sex: Female

DRUGS (6)
  1. ENABLEX [Suspect]
     Dosage: 7.5 MG, UNK
     Dates: start: 20100125
  2. NEXIUM [Concomitant]
     Dosage: UNK
  3. SYNTHROID [Concomitant]
     Dosage: UNK
  4. SODIUM BICARBONATE [Concomitant]
     Dosage: UNK
  5. VITAMINS [Concomitant]
     Dosage: UNK
  6. PROCRIT                            /00909301/ [Concomitant]
     Dosage: UNK

REACTIONS (3)
  - DIZZINESS [None]
  - FALL [None]
  - HEAD INJURY [None]
